FAERS Safety Report 19355629 (Version 1)
Quarter: 2021Q2

REPORT INFORMATION
  Report Type: Spontaneous
  Country: JP (occurrence: JP)
  Receive Date: 20210602
  Receipt Date: 20210602
  Transmission Date: 20210717
  Serious: Yes (Other)
  Sender: FDA-Public Use
  Company Number: JP-AMGEN-JPNSP2020111826

PATIENT
  Age: 7 Year
  Sex: Female

DRUGS (2)
  1. BLINCYTO [Suspect]
     Active Substance: BLINATUMOMAB
     Indication: ACUTE LYMPHOCYTIC LEUKAEMIA RECURRENT
     Dosage: 5 MICROGRAM/SQ. METER
     Route: 042
     Dates: start: 20200703
  2. BLINCYTO [Suspect]
     Active Substance: BLINATUMOMAB
     Dosage: 2.5 ML/H
     Route: 042
     Dates: start: 20200709

REACTIONS (6)
  - Graft versus host disease in skin [Not Recovered/Not Resolved]
  - Pyrexia [Recovered/Resolved]
  - Neutrophil count decreased [Recovered/Resolved]
  - Stenosis [Recovered/Resolved]
  - Device occlusion [Recovered/Resolved]
  - Nasopharyngitis [Recovered/Resolved]

NARRATIVE: CASE EVENT DATE: 202007
